FAERS Safety Report 8504313-3 (Version None)
Quarter: 2012Q3

REPORT INFORMATION
  Report Type: 
  Country: None (occurrence: None)
  Receive Date: 20120711
  Receipt Date: 20120703
  Transmission Date: 20120928
  Serious: Yes (Hospitalization, Other)
  Sender: FDA-Public Use
  Company Number: US-009507513-1105USA00585

PATIENT

DRUGS (9)
  1. VITAMIN D (UNSPECIFIED) [Concomitant]
  2. FOSAMAX [Suspect]
     Dosage: 70 MG, QW
     Route: 048
     Dates: start: 20090121, end: 20090829
  3. FOSAMAX [Suspect]
     Dosage: 70 MG, QW
     Route: 048
     Dates: start: 20091026, end: 20101010
  4. FOSAMAX [Suspect]
     Dosage: 10 MG, UNK
     Route: 048
  5. LIPITOR [Concomitant]
     Indication: BLOOD CHOLESTEROL INCREASED
  6. FOSAMAX [Suspect]
     Indication: OSTEOPOROSIS
     Dosage: 70 MG, QW
     Route: 048
     Dates: start: 19960101, end: 20101201
  7. MK-9039 [Concomitant]
     Dosage: 1-3
     Dates: start: 20090708
  8. CALCIUM (UNSPECIFIED) [Concomitant]
     Dosage: 500 MG, UNK
  9. THERAPY UNSPECIFIED [Concomitant]

REACTIONS (47)
  - FALL [None]
  - PANCREATITIS [None]
  - PERIPHERAL VASCULAR DISORDER [None]
  - ROTATOR CUFF SYNDROME [None]
  - CATARACT [None]
  - ARTHRITIS [None]
  - MUSCLE SPASMS [None]
  - RENAL CELL CARCINOMA [None]
  - PYREXIA [None]
  - CARDIAC DISORDER [None]
  - LABILE HYPERTENSION [None]
  - ARRHYTHMIA [None]
  - BACK PAIN [None]
  - GINGIVAL DISORDER [None]
  - FIBROMYALGIA [None]
  - GAIT DISTURBANCE [None]
  - OSTEOARTHRITIS [None]
  - OSTEOPENIA [None]
  - SPINAL COLUMN STENOSIS [None]
  - DRUG HYPERSENSITIVITY [None]
  - TOOTH DISORDER [None]
  - OSTEOPOROSIS [None]
  - URINARY TRACT INFECTION [None]
  - RECTOCELE [None]
  - HYPERTENSION [None]
  - BENIGN NEOPLASM OF THYROID GLAND [None]
  - HYPERTONIC BLADDER [None]
  - FRACTURE DELAYED UNION [None]
  - CERUMEN IMPACTION [None]
  - CHRONIC OBSTRUCTIVE PULMONARY DISEASE [None]
  - WEIGHT INCREASED [None]
  - OSTEOARTHROPATHY [None]
  - HYPERLIPIDAEMIA [None]
  - GASTROINTESTINAL DISORDER [None]
  - GASTROENTERITIS [None]
  - ATRIAL FIBRILLATION [None]
  - ATROPHIC VULVOVAGINITIS [None]
  - SPINAL OSTEOARTHRITIS [None]
  - FEMUR FRACTURE [None]
  - ARTERIOSCLEROSIS CORONARY ARTERY [None]
  - HYPOKALAEMIA [None]
  - CAROTID ARTERY DISEASE [None]
  - ORAL DISORDER [None]
  - HIATUS HERNIA [None]
  - MYOFASCIAL PAIN SYNDROME [None]
  - BURSITIS [None]
  - NECK PAIN [None]
